FAERS Safety Report 6924315-8 (Version None)
Quarter: 2010Q3

REPORT INFORMATION
  Report Type: 
  Country: None (occurrence: None)
  Receive Date: 20100811
  Receipt Date: 20100811
  Transmission Date: 20110219
  Serious: Yes (Hospitalization)
  Sender: FDA-Public Use
  Company Number: None

PATIENT
  Age: 54 Year
  Sex: Female
  Weight: 58.9676 kg

DRUGS (3)
  1. AVASTIN [Suspect]
     Indication: BREAST CANCER METASTATIC
     Dosage: 15 MG/KG, DAY 1, Q21 DAYS EVERY 21 DAYS IV DRIP
     Route: 041
     Dates: start: 20100618, end: 20100730
  2. HERCEPTIN [Concomitant]
  3. TAXOTERE [Concomitant]

REACTIONS (6)
  - COUGH [None]
  - FEBRILE NEUTROPENIA [None]
  - HEADACHE [None]
  - NASOPHARYNGITIS [None]
  - NAUSEA [None]
  - OROPHARYNGEAL PAIN [None]
